FAERS Safety Report 24862611 (Version 1)
Quarter: 2025Q1

REPORT INFORMATION
  Report Type: Spontaneous
  Country: FI (occurrence: FI)
  Receive Date: 20250120
  Receipt Date: 20250120
  Transmission Date: 20250408
  Serious: Yes (Other)
  Sender: TEVA
  Company Number: FI-TEVA-VS-3285864

PATIENT
  Age: 53 Year
  Sex: Male

DRUGS (1)
  1. IVERMECTIN [Suspect]
     Active Substance: IVERMECTIN
     Indication: Acarodermatitis
     Route: 048
     Dates: start: 20241214, end: 20241214

REACTIONS (14)
  - Depressed level of consciousness [Unknown]
  - Burning sensation [Not Recovered/Not Resolved]
  - Dizziness [Recovered/Resolved]
  - General physical health deterioration [Recovered/Resolved]
  - Syncope [Unknown]
  - Skin reaction [Not Recovered/Not Resolved]
  - Contusion [Not Recovered/Not Resolved]
  - Vertigo [Recovered/Resolved]
  - Viral infection [Unknown]
  - Headache [Recovered/Resolved]
  - Blister [Not Recovered/Not Resolved]
  - Skin lesion [Not Recovered/Not Resolved]
  - Fatigue [Recovered/Resolved]
  - Somnolence [Recovered/Resolved]

NARRATIVE: CASE EVENT DATE: 20241201
